FAERS Safety Report 20933485 (Version 1)
Quarter: 2022Q2

REPORT INFORMATION
  Report Type: Spontaneous
  Country: NL (occurrence: NL)
  Receive Date: 20220608
  Receipt Date: 20220608
  Transmission Date: 20220721
  Serious: Yes (Other)
  Sender: FDA-Public Use
  Company Number: None

PATIENT
  Sex: Female
  Weight: 78 kg

DRUGS (1)
  1. ALBUTEROL [Suspect]
     Active Substance: ALBUTEROL
     Dosage: 5 X INHALATION ,SALBUTAMOL AEROSOL 100UG/DO / BRAND NAME NOT SPECIFIED,UNIT DOSE : 5 DF,THERAPY STAR

REACTIONS (4)
  - Abortion spontaneous [Unknown]
  - Palpitations [Unknown]
  - Tremor [Unknown]
  - Maternal exposure during pregnancy [Unknown]
